FAERS Safety Report 8136379-7 (Version None)
Quarter: 2012Q1

REPORT INFORMATION
  Report Type: 
  Country: None (occurrence: None)
  Receive Date: 20120210
  Receipt Date: 20120130
  Transmission Date: 20120608
  Serious: Yes (Hospitalization)
  Sender: FDA-Public Use
  Company Number: DSJ-2011-23292

PATIENT
  Age: 65 Year
  Sex: Female

DRUGS (4)
  1. BENICAR HCT [Suspect]
     Indication: HYPERTENSION
     Dosage: 20/12.5 MG (1 IN 1 D), PER ORAL
     Route: 048
     Dates: start: 20070101, end: 20111101
  2. ACETYLSALICYLIC ACID SRT [Concomitant]
  3. ROSUVASTATIN [Concomitant]
  4. DILTIAZEM [Concomitant]

REACTIONS (2)
  - ROAD TRAFFIC ACCIDENT [None]
  - CREATININE URINE INCREASED [None]
